FAERS Safety Report 19015086 (Version 1)
Quarter: 2021Q1

REPORT INFORMATION
  Report Type: Spontaneous
  Country: US (occurrence: US)
  Receive Date: 20210317
  Receipt Date: 20210317
  Transmission Date: 20210420
  Serious: Yes (Other)
  Sender: FDA-Public Use
  Company Number: US-SUN PHARMACEUTICAL INDUSTRIES LTD-2020R1-240244

PATIENT
  Age: 27 Year
  Sex: Female

DRUGS (2)
  1. OLANZAPINE. [Concomitant]
     Active Substance: OLANZAPINE
     Indication: PSYCHOTIC DISORDER
     Dosage: 5 MILLIGRAM, DAILY
     Route: 065
  2. VENLAFAXINE [Suspect]
     Active Substance: VENLAFAXINE HYDROCHLORIDE
     Indication: DEPRESSION
     Dosage: 75 MILLIGRAM, 1DOSE/12HOUR
     Route: 065

REACTIONS (1)
  - Sinus tachycardia [Recovered/Resolved]
